FAERS Safety Report 20842928 (Version 1)
Quarter: 2022Q2

REPORT INFORMATION
  Report Type: Spontaneous
  Country: IN (occurrence: IN)
  Receive Date: 20220518
  Receipt Date: 20220518
  Transmission Date: 20220720
  Serious: Yes (Life-Threatening, Hospitalization, Other)
  Sender: FDA-Public Use
  Company Number: IN-SUN PHARMACEUTICAL INDUSTRIES LTD-2022R1-336558

PATIENT
  Age: 22 Year
  Sex: Female

DRUGS (2)
  1. IRON SUCROSE [Suspect]
     Active Substance: IRON SUCROSE
     Indication: Iron deficiency anaemia
     Dosage: UNK (200 MG DILUTED IN 100 ML NORMAL SALINE)
     Route: 042
  2. IRON SUCROSE [Suspect]
     Active Substance: IRON SUCROSE
     Dosage: UNK (SECOND DOSE)
     Route: 042

REACTIONS (1)
  - Anaphylactic reaction [Recovering/Resolving]
